FAERS Safety Report 13296728 (Version 2)
Quarter: 2017Q1

REPORT INFORMATION
  Report Type: Spontaneous
  Country: US (occurrence: US)
  Receive Date: 20170306
  Receipt Date: 20170309
  Transmission Date: 20170428
  Serious: Yes (Other)
  Sender: FDA-Public Use
  Company Number: US-HORIZON-ACT-0042-2017

PATIENT
  Age: 8 Year
  Sex: Male

DRUGS (2)
  1. ACTIMMUNE [Suspect]
     Active Substance: INTERFERON GAMMA-1B
     Indication: CHRONIC GRANULOMATOUS DISEASE
     Dosage: 0.22 ML TIW
     Dates: start: 20130226
  2. BACTRIM [Concomitant]
     Active Substance: SULFAMETHOXAZOLE\TRIMETHOPRIM

REACTIONS (6)
  - Lack of injection site rotation [Unknown]
  - Lung disorder [Unknown]
  - Influenza like illness [Unknown]
  - Pyrexia [Unknown]
  - Abdominal pain upper [Unknown]
  - Crying [Unknown]

NARRATIVE: CASE EVENT DATE: 201611
